FAERS Safety Report 17053607 (Version 1)
Quarter: 2019Q4

REPORT INFORMATION
  Report Type: Report from Study
  Country: US (occurrence: US)
  Receive Date: 20191120
  Receipt Date: 20191120
  Transmission Date: 20200122
  Serious: No
  Sender: FDA-Public Use
  Company Number: US-IPSEN BIOPHARMACEUTICALS, INC.-2019-21405

PATIENT
  Age: 8 Year

DRUGS (2)
  1. DYSPORT [Suspect]
     Active Substance: ABOBOTULINUMTOXINA
     Indication: MUSCLE SPASTICITY
  2. DYSPORT [Suspect]
     Active Substance: ABOBOTULINUMTOXINA
     Indication: MUSCLE SPASTICITY
     Dosage: WRIST FLEXORS: 5.00, ELBOW FLEXORS: 5.00, LOWER LIMB DISTAL MUSCLES: 10.00, LOWER LIMB PROXIMAL MUSC
     Route: 030

REACTIONS (1)
  - Muscle spasticity [Unknown]
